FAERS Safety Report 8132780-6 (Version None)
Quarter: 2012Q1

REPORT INFORMATION
  Report Type: 
  Country: None (occurrence: None)
  Receive Date: 20120207
  Receipt Date: 20120124
  Transmission Date: 20120608
  Serious: Yes (Life-Threatening)
  Sender: FDA-Public Use
  Company Number: 1173389

PATIENT
  Age: 40 Year
  Sex: Female

DRUGS (2)
  1. MITOXANTRONE HYDROCHLORIDE [Suspect]
     Indication: MULTIPLE SCLEROSIS
     Dosage: 93 MG/M2 (CUMULATIVE), UNKNOWN, INTRAVENOUS (NOT OTHERWISE SPECIFIED)
     Route: 042
     Dates: start: 20040501, end: 20100301
  2. GLATIRAMER ACETATE [Suspect]
     Indication: MULTIPLE SCLEROSIS
     Dosage: 20 MG MILLIGRAM(S), UNKNOWN, SUBCUTANEOUS
     Route: 058

REACTIONS (1)
  - BREAST CANCER [None]
